FAERS Safety Report 15239760 (Version 2)
Quarter: 2018Q4

REPORT INFORMATION
  Report Type: Spontaneous
  Country: MX (occurrence: MX)
  Receive Date: 20180803
  Receipt Date: 20180803
  Transmission Date: 20190204
  Serious: Yes (Other)
  Sender: FDA-Public Use
  Company Number: MX-009507513-1807MEX004993

PATIENT
  Age: 33 Year
  Sex: Female

DRUGS (34)
  1. SINGULAIR [Suspect]
     Active Substance: MONTELUKAST SODIUM
     Indication: URTICARIA
     Dosage: 10 MG, 1 TABLET, EVERY NIGHT, WITHOUT STOPPING
     Route: 048
     Dates: start: 20100421
  2. SINGULAIR [Suspect]
     Active Substance: MONTELUKAST SODIUM
     Dosage: 1 DF, PRN
     Route: 048
     Dates: start: 20131122
  3. METICORTEN [Concomitant]
     Active Substance: PREDNISONE
     Indication: URTICARIA
     Dosage: 5 MG DAILY, 1 TABLET IN THE MORNING AND AT NIGHT
     Route: 048
     Dates: start: 20100512, end: 20100514
  4. METICORTEN [Concomitant]
     Active Substance: PREDNISONE
     Dosage: 5 MG, IN THE MORNING
     Route: 048
     Dates: start: 20100530, end: 2010
  5. CIPROFLOXACIN. [Concomitant]
     Active Substance: CIPROFLOXACIN
     Dosage: 500 MG, Q12H
     Route: 048
     Dates: start: 20100807, end: 20100813
  6. SEVERIN [Concomitant]
     Indication: URTICARIA
     Dosage: 100 MG, Q12H FOR 3-4 DAYS
     Route: 048
     Dates: start: 20100807, end: 201008
  7. STERIMAR [Concomitant]
     Active Substance: SEA WATER
     Dosage: UNK
     Route: 045
     Dates: start: 20131122
  8. RINELON (MOMETASONE FUROATE) [Suspect]
     Active Substance: MOMETASONE FUROATE
     Dosage: 1 SHOT IN EACH NOSTRIL AT NIGHT IF NECESSARY
     Route: 045
     Dates: start: 201012, end: 2010
  9. RINELON (MOMETASONE FUROATE) [Suspect]
     Active Substance: MOMETASONE FUROATE
     Dosage: 2 DF, Q12H
     Dates: start: 20130123, end: 2013
  10. XUZAL [Concomitant]
     Active Substance: LEVOCETIRIZINE
     Dosage: 2 TABLETS IN THE MORNING
     Route: 048
     Dates: start: 20101030, end: 201012
  11. XUZAL [Concomitant]
     Active Substance: LEVOCETIRIZINE
     Dosage: 2 DF, QD
     Route: 048
     Dates: start: 20101207
  12. METICORTEN [Concomitant]
     Active Substance: PREDNISONE
     Dosage: 0.5 TABLET IN THE MORNING AND 0.25 TABLET
     Route: 048
     Dates: start: 20100518, end: 20100520
  13. SEVERIN [Concomitant]
     Dosage: 100 MG, Q12H FOR 3-4 DAYS
     Route: 048
     Dates: start: 20101207, end: 20101217
  14. ADEROGYL [Concomitant]
     Dosage: 1 AMPOULLE PER WEEK
     Dates: start: 20101124, end: 201102
  15. ADEROGYL [Concomitant]
     Dosage: 1 DF, QW
     Dates: start: 20131122, end: 201401
  16. RINELON (MOMETASONE FUROATE) [Suspect]
     Active Substance: MOMETASONE FUROATE
     Indication: RHINITIS ALLERGIC
     Dosage: 1 SHOT IN EACH NOSTRIL AT NIGHT
     Route: 045
     Dates: start: 201011, end: 201012
  17. RINELON (MOMETASONE FUROATE) [Suspect]
     Active Substance: MOMETASONE FUROATE
     Dosage: 2 DF, Q12H
     Dates: start: 20101207, end: 2011
  18. XUZAL [Concomitant]
     Active Substance: LEVOCETIRIZINE
     Indication: URTICARIA
     Dosage: 5 MG, THREE TIMES DAILY IN THE MORNING, WITHOUT STOPPING
     Route: 048
     Dates: start: 20100421, end: 201010
  19. METICORTEN [Concomitant]
     Active Substance: PREDNISONE
     Dosage: 1 TABLET IN THE MORNING AND 0.5 TABLET AT NIGHT
     Route: 048
     Dates: start: 20100515, end: 20100517
  20. XUZAL [Concomitant]
     Active Substance: LEVOCETIRIZINE
     Dosage: 2 TABLETS, QD
     Route: 048
     Dates: start: 20101124, end: 2010
  21. XUZAL [Concomitant]
     Active Substance: LEVOCETIRIZINE
     Dosage: 1 DF, QD
     Route: 048
     Dates: start: 20130202
  22. ADEROGYL [Concomitant]
     Dosage: 1 DF, QW
     Dates: start: 20130123, end: 201303
  23. STERIMAR [Concomitant]
     Active Substance: SEA WATER
     Dosage: UNK
     Route: 045
     Dates: start: 20100124
  24. SINGULAIR [Suspect]
     Active Substance: MONTELUKAST SODIUM
     Dosage: 1 DF, HS
     Route: 048
     Dates: start: 20130123, end: 201302
  25. XUZAL [Concomitant]
     Active Substance: LEVOCETIRIZINE
     Dosage: 1 TABLET IN THE MORNING
     Route: 048
     Dates: start: 201012
  26. XUZAL [Concomitant]
     Active Substance: LEVOCETIRIZINE
     Dosage: 1 TABLET, QD
     Route: 048
     Dates: start: 2010, end: 2010
  27. XUZAL [Concomitant]
     Active Substance: LEVOCETIRIZINE
     Dosage: 1 DF, BID
     Route: 048
     Dates: start: 20130123, end: 20130201
  28. XUZAL [Concomitant]
     Active Substance: LEVOCETIRIZINE
     Dosage: 1 TABLET EVERY 12-24 HOURS IF NECESSARY
     Dates: start: 20131122, end: 2013
  29. ARCOXIA [Concomitant]
     Active Substance: ETORICOXIB
     Indication: PAIN
     Dosage: 1 DF, QD
     Route: 048
     Dates: start: 20130123
  30. RINELON (MOMETASONE FUROATE) [Suspect]
     Active Substance: MOMETASONE FUROATE
     Dosage: 2 DF, HS FOR 2-3 WEEKS
     Route: 045
     Dates: start: 20131122, end: 2013
  31. XUZAL [Concomitant]
     Active Substance: LEVOCETIRIZINE
     Dosage: 1 DF, QD
     Route: 048
     Dates: start: 201101
  32. METICORTEN [Concomitant]
     Active Substance: PREDNISONE
     Dosage: 0.25 TABLET IN THE MORNING
     Route: 048
     Dates: start: 20100521, end: 20100523
  33. STERIMAR [Concomitant]
     Active Substance: SEA WATER
     Indication: NASAL IRRIGATION
     Dosage: UNK
     Route: 045
     Dates: start: 20101207
  34. ARCOXIA [Concomitant]
     Active Substance: ETORICOXIB
     Dosage: 1 DF, QD
     Route: 048
     Dates: start: 20131122

REACTIONS (7)
  - Lymphopenia [Unknown]
  - Product use in unapproved indication [Unknown]
  - Hodgkin^s disease nodular sclerosis [Unknown]
  - Urticaria [Recovered/Resolved]
  - Intentional product misuse [Unknown]
  - Nasal obstruction [Unknown]
  - Drug ineffective for unapproved indication [Unknown]

NARRATIVE: CASE EVENT DATE: 2010
